FAERS Safety Report 17081593 (Version 1)
Quarter: 2019Q4

REPORT INFORMATION
  Report Type: Spontaneous
  Country: US (occurrence: US)
  Receive Date: 20191126
  Receipt Date: 20191126
  Transmission Date: 20200122
  Serious: No
  Sender: FDA-Public Use
  Company Number: None

PATIENT
  Age: 5 Week
  Sex: Female
  Weight: 1.1 kg

DRUGS (1)
  1. CHLORHEXADINE TOPICAL WIPES [Suspect]
     Active Substance: CHLORHEXIDINE
     Indication: STAPHYLOCOCCAL INFECTION
     Dates: start: 20191120, end: 20191121

REACTIONS (2)
  - Skin exfoliation [None]
  - Erythema [None]

NARRATIVE: CASE EVENT DATE: 20191126
